FAERS Safety Report 17298550 (Version 3)
Quarter: 2020Q1

REPORT INFORMATION
  Report Type: Spontaneous
  Country: JP (occurrence: JP)
  Receive Date: 20200121
  Receipt Date: 20200204
  Transmission Date: 20200409
  Serious: Yes (Other)
  Sender: FDA-Public Use
  Company Number: JP-PFIZER INC-2020023510

PATIENT
  Age: 27 Year
  Sex: Female

DRUGS (7)
  1. EPIRUBICIN HCL [Suspect]
     Active Substance: EPIRUBICIN HYDROCHLORIDE
     Dosage: 126 MG, EVERY 3 WEEKS (126 MG, 90 MG/M2)
  2. CYCLOPHOSPHAMIDE. [Suspect]
     Active Substance: CYCLOPHOSPHAMIDE
     Dosage: 840 MG, EVERY 3 WEEKS (840 MG, 600 MG/M2)
  3. DOCETAXEL. [Suspect]
     Active Substance: DOCETAXEL
     Indication: BREAST CANCER FEMALE
     Dosage: UNK, CYCLIC (1 CYCLE)
  4. EPIRUBICIN HCL [Suspect]
     Active Substance: EPIRUBICIN HYDROCHLORIDE
     Indication: BREAST CANCER FEMALE
     Dosage: UNK, CYCLIC (DOSE-DENSE)
  5. CYCLOPHOSPHAMIDE. [Suspect]
     Active Substance: CYCLOPHOSPHAMIDE
     Indication: BREAST CANCER FEMALE
     Dosage: UNK, CYCLIC
  6. DOCETAXEL. [Suspect]
     Active Substance: DOCETAXEL
     Dosage: 106 MG, EVERY 3 WEEKS (106 MG, 75 MG/M2)
  7. PREDNISOLONE. [Suspect]
     Active Substance: PREDNISOLONE
     Dosage: 17.4 MG, 1X/DAY

REACTIONS (1)
  - Pneumocystis jirovecii pneumonia [Recovering/Resolving]
